FAERS Safety Report 5830576-9 (Version None)
Quarter: 2008Q3

REPORT INFORMATION
  Report Type: 
  Country: None (occurrence: None)
  Receive Date: 20080801
  Receipt Date: 20070726
  Transmission Date: 20090109
  Serious: Yes (Hospitalization)
  Sender: FDA-Public Use
  Company Number: US-BRISTOL-MYERS SQUIBB COMPANY-13858741

PATIENT
  Sex: Male

DRUGS (3)
  1. COUMADIN [Suspect]
     Indication: THROMBOSIS
     Dosage: DOSE DECREASED TO 10 MG
  2. HEPARIN [Concomitant]
  3. LOVENOX [Concomitant]

REACTIONS (4)
  - BACK PAIN [None]
  - BLOOD URINE PRESENT [None]
  - CYSTITIS [None]
  - INTERNATIONAL NORMALISED RATIO ABNORMAL [None]
